FAERS Safety Report 7214475-6 (Version None)
Quarter: 2011Q1

REPORT INFORMATION
  Report Type: 
  Country: None (occurrence: None)
  Receive Date: 20110107
  Receipt Date: 20110103
  Transmission Date: 20110831
  Serious: Yes (Life-Threatening)
  Sender: FDA-Public Use
  Company Number: PHHY2010FR81451

PATIENT
  Weight: 78 kg

DRUGS (1)
  1. ZOLEDRONATE [Suspect]
     Indication: METASTASES TO BONE
     Dosage: 4 MG, UNK
     Route: 042
     Dates: start: 20080701, end: 20100111

REACTIONS (6)
  - DIVERTICULITIS [None]
  - PERITONITIS [None]
  - LARGE INTESTINE PERFORATION [None]
  - GASTROINTESTINAL PERFORATION [None]
  - SIGMOIDITIS [None]
  - ABSCESS [None]
